FAERS Safety Report 8447708 (Version 5)
Quarter: 2014Q3

REPORT INFORMATION
  Report Type: Report from Study
  Country: US (occurrence: US)
  Receive Date: 20120308
  Receipt Date: 20140805
  Transmission Date: 20150326
  Serious: Yes (Hospitalization)
  Sender: FDA-Public Use
  Company Number: PHHO2012US003821

PATIENT
  Age: 64 Year
  Sex: Male
  Weight: 99.77 kg

DRUGS (8)
  1. ENALAPRIL [Suspect]
     Active Substance: ENALAPRIL
     Dosage: 10 MG, BID
     Route: 048
  2. LISINOPRIL. [Concomitant]
     Active Substance: LISINOPRIL
     Indication: CARDIAC FAILURE
     Dosage: 20 MG, BID
     Dates: start: 20061206
  3. FUROSEMIDE. [Suspect]
     Active Substance: FUROSEMIDE
     Dosage: 40 MG, BID
     Dates: start: 20120301
  4. METOPROLOL SUCCINATE. [Concomitant]
     Active Substance: METOPROLOL SUCCINATE
     Indication: CARDIAC FAILURE CHRONIC
     Dosage: 50 MG, QD
     Dates: start: 20050226, end: 20120222
  5. FUROSEMIDE. [Suspect]
     Active Substance: FUROSEMIDE
     Indication: CARDIAC FAILURE CHRONIC
     Dosage: 40 MG, TID
     Dates: start: 20120203, end: 20120227
  6. PLAVIX [Concomitant]
     Active Substance: CLOPIDOGREL BISULFATE
     Indication: CORONARY ARTERY DISEASE
     Dosage: 75 MG, QD
     Dates: start: 20020215, end: 20120222
  7. ENALAPRIL [Suspect]
     Active Substance: ENALAPRIL
     Indication: CARDIAC FAILURE CHRONIC
     Dosage: 10 MG, BID
     Route: 048
     Dates: start: 20101124, end: 20120227
  8. SPIRONOLACTONE. [Concomitant]
     Active Substance: SPIRONOLACTONE
     Indication: CARDIAC FAILURE CHRONIC
     Dosage: 12.5 MG, QD, M-W-F
     Dates: start: 20050226, end: 20120222

REACTIONS (3)
  - Renal impairment [Recovered/Resolved]
  - Angina pectoris [Recovered/Resolved]
  - Bronchitis chronic [Recovered/Resolved]

NARRATIVE: CASE EVENT DATE: 20120227
